FAERS Safety Report 4756240-5 (Version None)
Quarter: 2005Q3

REPORT INFORMATION
  Report Type: 
  Country: None (occurrence: None)
  Receive Date: 20050830
  Receipt Date: 20050511
  Transmission Date: 20060218
  Serious: Yes (Hospitalization)
  Sender: FDA-Public Use
  Company Number: US-GLAXOSMITHKLINE-A0558168A

PATIENT
  Age: 50 Year
  Sex: Male

DRUGS (5)
  1. WELLBUTRIN [Suspect]
     Indication: DEPRESSION
     Dosage: 300MG PER DAY
     Route: 048
     Dates: start: 20040101, end: 20050430
  2. NEXIUM [Concomitant]
  3. CELEBREX [Concomitant]
  4. ASPIRIN [Concomitant]
  5. ALLEGRA [Concomitant]

REACTIONS (1)
  - CONVULSION [None]
